FAERS Safety Report 5675497-X (Version None)
Quarter: 2008Q2

REPORT INFORMATION
  Report Type: 
  Country: None (occurrence: None)
  Receive Date: 20080311
  Receipt Date: 20080109
  Transmission Date: 20081010
  Serious: Yes (Hospitalization)
  Sender: FDA-Public Use
  Company Number: PHEH2008US00705

PATIENT
  Age: 60 Year
  Sex: Male

DRUGS (4)
  1. TRILEPTAL [Suspect]
     Indication: TRIGEMINAL NEURALGIA
     Dosage: 600 MG, BID, ORAL; 750 MG, BID, ORAL
     Route: 048
     Dates: start: 20070901, end: 20070901
  2. TRILEPTAL [Suspect]
     Indication: TRIGEMINAL NEURALGIA
     Dosage: 600 MG, BID, ORAL; 750 MG, BID, ORAL
     Route: 048
     Dates: end: 20070901
  3. LAMICTAL [Concomitant]
  4. OXCARBAZEPINE [Concomitant]

REACTIONS (3)
  - CONDITION AGGRAVATED [None]
  - PAIN [None]
  - TRIGEMINAL NEURALGIA [None]
